FAERS Safety Report 5135446-X (Version None)
Quarter: 2006Q4

REPORT INFORMATION
  Report Type: 
  Country: None (occurrence: None)
  Receive Date: 20061026
  Receipt Date: 20061019
  Transmission Date: 20070319
  Serious: Yes (Hospitalization)
  Sender: FDA-Public Use
  Company Number: IT-GLAXOSMITHKLINE-B0443836A

PATIENT
  Age: 46 Year
  Sex: Female

DRUGS (2)
  1. AUGMENTIN '125' [Suspect]
     Indication: TOOTHACHE
     Dosage: 2G PER DAY
     Route: 048
     Dates: start: 20050117, end: 20050120
  2. KETOPROFEN [Suspect]
     Indication: TOOTHACHE
     Route: 048
     Dates: start: 20050117, end: 20050120

REACTIONS (1)
  - URTICARIA [None]
